FAERS Safety Report 4612065-2 (Version None)
Quarter: 2005Q2

REPORT INFORMATION
  Report Type: 
  Country: None (occurrence: None)
  Receive Date: 20050308
  Receipt Date: 20050203
  Transmission Date: 20051028
  Serious: Yes (Other)
  Sender: FDA-Public Use
  Company Number: 2005UW00032

PATIENT
  Age: 73 Year
  Sex: Female
  Weight: 57.6068 kg

DRUGS (4)
  1. CRESTOR [Suspect]
     Indication: BLOOD CHOLESTEROL INCREASED
     Dosage: 2.5 MG QOD PO
     Route: 048
     Dates: start: 20041220, end: 20050103
  2. IMDUR [Concomitant]
  3. NORVASC [Concomitant]
  4. NITROGLYCERIN ^PHARMACIA + UPJOHN^ [Concomitant]

REACTIONS (4)
  - MUSCLE SPASMS [None]
  - MUSCULAR WEAKNESS [None]
  - SWOLLEN TONGUE [None]
  - WHEEZING [None]
